FAERS Safety Report 13831381 (Version 1)
Quarter: 2017Q3

REPORT INFORMATION
  Report Type: Spontaneous
  Country: US (occurrence: US)
  Receive Date: 20170803
  Receipt Date: 20170803
  Transmission Date: 20171127
  Serious: No
  Sender: FDA-Public Use
  Company Number: US-009507513-1707USA004906

PATIENT

DRUGS (1)
  1. KEYTRUDA [Suspect]
     Active Substance: PEMBROLIZUMAB
     Indication: PRODUCT USED FOR UNKNOWN INDICATION
     Dosage: 200 MG, 30 MINUTE INFUSION, EVERY 30 DAYS
     Route: 042
     Dates: start: 2017

REACTIONS (2)
  - Off label use [Unknown]
  - Pruritus generalised [Unknown]

NARRATIVE: CASE EVENT DATE: 2017
